FAERS Safety Report 15737744 (Version 1)
Quarter: 2018Q4

REPORT INFORMATION
  Report Type: Spontaneous
  Country: US (occurrence: US)
  Receive Date: 20181219
  Receipt Date: 20181219
  Transmission Date: 20190205
  Serious: No
  Sender: FDA-Public Use
  Company Number: US-LUPIN PHARMACEUTICALS INC.-2018-08227

PATIENT
  Sex: Female
  Weight: 68.27 kg

DRUGS (1)
  1. HYDROCODONE 7.5 MG AND ACETAMINOPHEN 325 MG [Suspect]
     Active Substance: ACETAMINOPHEN\HYDROCODONE
     Indication: ARTHRALGIA
     Dosage: 1 DF, TID
     Route: 048
     Dates: start: 20180828

REACTIONS (3)
  - Product taste abnormal [Unknown]
  - Drug ineffective [Unknown]
  - Product solubility abnormal [Unknown]
